FAERS Safety Report 19869153 (Version 2)
Quarter: 2022Q1

REPORT INFORMATION
  Report Type: Spontaneous
  Country: US (occurrence: US)
  Receive Date: 20210922
  Receipt Date: 20220127
  Transmission Date: 20220423
  Serious: No
  Sender: FDA-Public Use
  Company Number: US-GLENMARK PHARMACEUTICALS-2021GMK067779

PATIENT

DRUGS (2)
  1. FLUOCINOLONE ACETONIDE [Suspect]
     Active Substance: FLUOCINOLONE ACETONIDE
     Indication: Ear pain
     Dosage: 2 DROP, PRN (2 DROPS AS NEEDED)
     Route: 001
  2. FLUOCINOLONE ACETONIDE [Suspect]
     Active Substance: FLUOCINOLONE ACETONIDE
     Indication: Ear disorder
     Dosage: 2 DROP, PRN (2 DROPS AS NEEDED)
     Route: 001
     Dates: start: 20210831

REACTIONS (4)
  - Product use issue [Unknown]
  - Inappropriate schedule of product administration [Unknown]
  - Product container seal issue [Unknown]
  - Product packaging quantity issue [Unknown]

NARRATIVE: CASE EVENT DATE: 20210831
